FAERS Safety Report 13746177 (Version 1)
Quarter: 2017Q3

REPORT INFORMATION
  Report Type: Spontaneous
  Country: US (occurrence: US)
  Receive Date: 20170712
  Receipt Date: 20170712
  Transmission Date: 20171127
  Serious: Yes (Life-Threatening)
  Sender: FDA-Public Use
  Company Number: None

PATIENT
  Age: 55 Year
  Sex: Female
  Weight: 81 kg

DRUGS (4)
  1. ZANAFLEX [Suspect]
     Active Substance: TIZANIDINE HYDROCHLORIDE
     Indication: PAIN IN EXTREMITY
     Dosage: ?          OTHER STRENGTH:MG;QUANTITY:1 TABLET(S);?
     Route: 048
  2. ZANAFLEX [Suspect]
     Active Substance: TIZANIDINE HYDROCHLORIDE
     Indication: BACK PAIN
     Dosage: ?          OTHER STRENGTH:MG;QUANTITY:1 TABLET(S);?
     Route: 048
  3. VITAMIN B12 [Concomitant]
     Active Substance: CYANOCOBALAMIN
  4. VIT. D3 [Concomitant]

REACTIONS (10)
  - Confusional state [None]
  - Eye swelling [None]
  - Swollen tongue [None]
  - Feeling abnormal [None]
  - Dyspnoea [None]
  - Urticaria [None]
  - Anaphylactic reaction [None]
  - Swelling [None]
  - Dysphonia [None]
  - Drooling [None]

NARRATIVE: CASE EVENT DATE: 20140711
